FAERS Safety Report 14954350 (Version 2)
Quarter: 2018Q2

REPORT INFORMATION
  Report Type: Spontaneous
  Country: CN (occurrence: CN)
  Receive Date: 20180530
  Receipt Date: 20180611
  Transmission Date: 20180711
  Serious: Yes (Death, Life-Threatening, Hospitalization, Disabling, Other)
  Sender: FDA-Public Use
  Company Number: CN-GEHC-2018CSU001957

PATIENT

DRUGS (1)
  1. OMNIPAQUE [Suspect]
     Active Substance: IOHEXOL
     Indication: CHEST DISCOMFORT
     Dosage: 90 ML, SINGLE
     Route: 042
     Dates: start: 20180517, end: 20180517

REACTIONS (6)
  - Blood pressure systolic decreased [Not Recovered/Not Resolved]
  - Coma [Fatal]
  - Rash [Not Recovered/Not Resolved]
  - Dyspnoea [Fatal]
  - Cyanosis [Fatal]
  - Chest discomfort [Fatal]

NARRATIVE: CASE EVENT DATE: 20180517
